FAERS Safety Report 4795725-2 (Version None)
Quarter: 2005Q4

REPORT INFORMATION
  Report Type: 
  Country: None (occurrence: None)
  Receive Date: 20051012
  Receipt Date: 20050906
  Transmission Date: 20060501
  Serious: Yes (Hospitalization)
  Sender: FDA-Public Use
  Company Number: 2005AP04722

PATIENT
  Age: 16933 Day
  Sex: Female
  Weight: 50 kg

DRUGS (7)
  1. IRESSA [Suspect]
     Indication: BREAST CANCER
     Route: 048
     Dates: start: 20050829, end: 20050905
  2. IRESSA [Suspect]
     Route: 048
     Dates: start: 20050915
  3. EPIRUBICIN [Suspect]
     Indication: BREAST CANCER
     Route: 042
     Dates: start: 20050825, end: 20050825
  4. EPIRUBICIN [Suspect]
     Route: 042
     Dates: start: 20050915, end: 20050915
  5. PACLITAXEL [Suspect]
     Indication: BREAST CANCER
     Route: 042
     Dates: start: 20050825, end: 20050825
  6. PACLITAXEL [Suspect]
     Route: 042
     Dates: start: 20050915, end: 20050915
  7. XANAX [Concomitant]
     Route: 065

REACTIONS (1)
  - FEBRILE NEUTROPENIA [None]
